FAERS Safety Report 8967350 (Version 3)
Quarter: 2013Q1

REPORT INFORMATION
  Report Type: Spontaneous
  Country: SE (occurrence: SE)
  Receive Date: 20121214
  Receipt Date: 20130117
  Transmission Date: 20140127
  Serious: Yes (Other)
  Sender: FDA-Public Use
  Company Number: SE-ELI_LILLY_AND_COMPANY-SE201211009560

PATIENT
  Sex: Female

DRUGS (1)
  1. BYETTA [Suspect]
     Indication: DIABETES INSIPIDUS
     Dosage: UNK, UNKNOWN

REACTIONS (5)
  - Hyperthyroidism [Unknown]
  - Vomiting [Unknown]
  - Abdominal pain upper [Unknown]
  - Blood glucose increased [Unknown]
  - Glycosylated haemoglobin increased [Unknown]
